FAERS Safety Report 7317956-X (Version None)
Quarter: 2011Q1

REPORT INFORMATION
  Report Type: 
  Country: None (occurrence: None)
  Receive Date: 20110226
  Receipt Date: 20110131
  Transmission Date: 20110831
  Serious: No
  Sender: FDA-Public Use
  Company Number: US-B.I. PHARMACEUTICALS,INC./RIDGEFIELD-2011-BP-03124BP

PATIENT
  Sex: Male

DRUGS (3)
  1. ZOCOR [Concomitant]
     Indication: BLOOD CHOLESTEROL INCREASED
     Dates: start: 20060101
  2. PRADAXA [Suspect]
     Indication: ATRIAL FIBRILLATION
     Dosage: 300 MG
     Route: 048
     Dates: start: 20110111
  3. ASA [Concomitant]
     Indication: PROPHYLAXIS
     Dosage: 81 MG
     Dates: start: 20060101

REACTIONS (2)
  - BLOOD PRESSURE ABNORMAL [None]
  - HEART RATE ABNORMAL [None]
